FAERS Safety Report 6688409-7 (Version None)
Quarter: 2010Q2

REPORT INFORMATION
  Report Type: 
  Country: None (occurrence: None)
  Receive Date: 20100420
  Receipt Date: 20100408
  Transmission Date: 20101027
  Serious: Yes (Other)
  Sender: FDA-Public Use
  Company Number: PHHY2010FR22071

PATIENT
  Sex: Male

DRUGS (2)
  1. GLEEVEC [Suspect]
     Indication: CHRONIC MYELOID LEUKAEMIA
     Dosage: 1 TABLET/DAY
     Route: 048
     Dates: start: 20100306
  2. KARDEGIC [Concomitant]
     Indication: CHRONIC MYELOID LEUKAEMIA
     Dosage: 37.5 MG/DAY
     Route: 048
     Dates: start: 20100304

REACTIONS (3)
  - BONE INFARCTION [None]
  - OSTEOMYELITIS [None]
  - PAIN IN EXTREMITY [None]
